FAERS Safety Report 17952082 (Version 1)
Quarter: 2020Q2

REPORT INFORMATION
  Report Type: Spontaneous
  Country: DK (occurrence: DK)
  Receive Date: 20200626
  Receipt Date: 20200626
  Transmission Date: 20200714
  Serious: Yes (Disabling)
  Sender: FDA-Public Use
  Company Number: DK-JNJFOC-20200628199

PATIENT
  Age: 18 Year
  Sex: Male
  Weight: 70 kg

DRUGS (2)
  1. VFEND [Suspect]
     Active Substance: VORICONAZOLE
     Indication: BRONCHOPULMONARY ASPERGILLOSIS ALLERGIC
     Route: 048
     Dates: start: 2003, end: 2005
  2. SPORANOX [Suspect]
     Active Substance: ITRACONAZOLE
     Indication: FUNGAL INFECTION
     Route: 048
     Dates: end: 201504

REACTIONS (5)
  - Squamous cell carcinoma [Recovered/Resolved with Sequelae]
  - Scar [Not Recovered/Not Resolved]
  - Cancer surgery [Recovered/Resolved with Sequelae]
  - Skin wound [Recovered/Resolved with Sequelae]
  - Mouth injury [Recovered/Resolved with Sequelae]

NARRATIVE: CASE EVENT DATE: 2015
